FAERS Safety Report 19799078 (Version 1)
Quarter: 2021Q3

REPORT INFORMATION
  Report Type: Spontaneous
  Country: NL (occurrence: NL)
  Receive Date: 20210907
  Receipt Date: 20210907
  Transmission Date: 20211014
  Serious: Yes (Other)
  Sender: FDA-Public Use
  Company Number: NL-TEVA-2021-NL-1950137

PATIENT
  Age: 86 Year
  Sex: Male
  Weight: 73 kg

DRUGS (12)
  1. ISOSORBIDEMONONITRAAT CAPSULE MGA  25MG / MONO CEDOCARD RETARD CAPSULE [Concomitant]
     Dosage: MODIFIED?RELEASE CAPSULE, 25 MG (MILLIGRAM),THERAPY START DATE :ASKU,THERAPY END DATE :ASKU
  2. QUETIAPINE TABLET  12,5MG / BRAND NAME NOT SPECIFIED [Concomitant]
     Active Substance: QUETIAPINE
     Dosage: 12,5 MG (MILLIGRAM),THERAPY START DATE :ASKU,THERAPY END DATE :ASKU
  3. MACROGOL/ZOUTEN PDR V DRANK (MOVIC/MOLAX/LAXT/GEN) / MOVICOLON POEDER [Concomitant]
     Dosage: POWDER FOR DRINK,THERAPY START DATE :ASKU,THERAPY END DATE :ASKU
  4. COLECALCIFEROL TABLET   800IE / DIVISUN TABLET 800IE [Concomitant]
     Dosage: 800 UNITS,THERAPY START DATE :ASKU,THERAPY END DATE :ASKU
  5. NATRIUMCHLORIDE INFVLST   9MG/ML / BRAND NAME NOT SPECIFIED [Concomitant]
     Dosage: 9 MG/ML (MILLIGRAM PER MILLILITER),THERAPY START DATE :ASKU,THERAPY END DATE :ASKU
  6. MIRTAZAPINE SMELTTABLET 15MG / BRAND NAME NOT SPECIFIED [Concomitant]
     Dosage: MELTING TABLET,  15 MG (MILLIGRAM),THERAPY START DATE :ASKU,THERAPY END DATE :ASKU
  7. RIVAROXABAN TABLET 15MG / XARELTO TABLET FILMOMHULD 15MG [Concomitant]
     Dosage: 15 MG (MILLIGRAM),THERAPY START DATE :ASKU,THERAPY END DATE :ASKU
  8. SERTRALINE TABLET  50MG / BRAND NAME NOT SPECIFIED [Concomitant]
     Active Substance: SERTRALINE HYDROCHLORIDE
     Dosage: 50 MG (MILLIGRAM),THERAPY START DATE :ASKU,THERAPY END DATE :ASKU
  9. BISOPROLOL TABLET   2,5MG / BRAND NAME NOT SPECIFIED [Concomitant]
     Active Substance: BISOPROLOL
     Dosage: 2,5 MG (MILLIGRAM),THERAPY START DATE :ASKU,THERAPY END DATE :ASKU
  10. NEXIUM [Concomitant]
     Active Substance: ESOMEPRAZOLE MAGNESIUM
     Dosage: 40 MG (MILLIGRAMS),THERAPY START DATE :ASKU,THERAPY END DATE :ASKU
  11. TAMSULOSINE CAPSULE MGA 0,4MG / BRAND NAME NOT SPECIFIED [Suspect]
     Active Substance: TAMSULOSIN HYDROCHLORIDE
     Indication: URINARY RETENTION
     Dosage: .4 MILLIGRAM DAILY;
     Dates: start: 20210819, end: 20210820
  12. CYANOCOBALAMINE TABLET 1000UG / BRAND NAME NOT SPECIFIED [Concomitant]
     Active Substance: CYANOCOBALAMIN
     Dosage: 1000 UG (MICROGRAM),THERAPY START DATE :ASKU,THERAPY END DATE :ASKU

REACTIONS (3)
  - Psychotic symptom [Recovered/Resolved]
  - Orthostatic hypotension [Recovering/Resolving]
  - Nightmare [Recovered/Resolved]

NARRATIVE: CASE EVENT DATE: 20210820
